FAERS Safety Report 21393863 (Version 1)
Quarter: 2022Q3

REPORT INFORMATION
  Report Type: Spontaneous
  Country: FR (occurrence: FR)
  Receive Date: 20220930
  Receipt Date: 20220930
  Transmission Date: 20221026
  Serious: Yes (Hospitalization, Other)
  Sender: FDA-Public Use
  Company Number: FR-EMA-20170711-MSHETTYP-093342556

PATIENT
  Age: 34 Year
  Sex: Female
  Weight: 54 kg

DRUGS (24)
  1. AMINO ACIDS, SOURCE UNSPECIFIED [Suspect]
     Active Substance: AMINO ACIDS, SOURCE UNSPECIFIED
     Indication: Parenteral nutrition
     Dosage: 8 G, ONCE DAILY
     Route: 042
  2. CERNEVIT [Suspect]
     Active Substance: VITAMINS
     Indication: Parenteral nutrition
     Dosage: 1 IU ONCE DAILY
     Route: 042
  3. CERNEVIT [Suspect]
     Active Substance: VITAMINS
     Dosage: 1 DF ONCE DAILY
     Route: 042
  4. CERNEVIT [Suspect]
     Active Substance: VITAMINS
     Dosage: 1 DF ONCE DAILY
     Route: 042
  5. DEXTROSE [Suspect]
     Active Substance: DEXTROSE
     Indication: Parenteral nutrition
     Dosage: STRENGTH: 1000 ML, 280 G, ONCE DAILY
     Route: 042
  6. CALCIUM GLUCONATE [Suspect]
     Active Substance: CALCIUM GLUCONATE
     Indication: Parenteral nutrition
     Dosage: STRENGTH: 500 ML, 5 ML, ONCE DAILY
     Route: 042
  7. VITAMIN K1 [Suspect]
     Active Substance: PHYTONADIONE
     Indication: Parenteral nutrition
     Dosage: 0.01 G, ONCE DIALY
     Route: 042
  8. SODIUM SELENITE [Suspect]
     Active Substance: SODIUM SELENITE
     Indication: Parenteral nutrition
     Dosage: ONCE DAILY
     Route: 042
  9. SODIUM SELENITE [Suspect]
     Active Substance: SODIUM SELENITE
     Dosage: UNK
     Route: 065
  10. PHOCYTAN [Suspect]
     Active Substance: .ALPHA.-GLUCOSE-1-PHOSPHATE
     Indication: Parenteral nutrition
     Dosage: 30 ML, ONCE DAILY
     Route: 042
  11. PHOCYTAN [Suspect]
     Active Substance: .ALPHA.-GLUCOSE-1-PHOSPHATE
     Route: 065
  12. .ALPHA.-TOCOPHEROL ACETATE [Suspect]
     Active Substance: .ALPHA.-TOCOPHEROL ACETATE
     Indication: Parenteral nutrition
     Dosage: 0.1 G, ONCE DAILY, VIT E
     Route: 042
  13. SMOFLIPID [Suspect]
     Active Substance: FISH OIL\MEDIUM-CHAIN TRIGLYCERIDES\OLIVE OIL\SOYBEAN OIL
     Indication: Parenteral nutrition
     Dosage: 50 G, ONCE DAILY
     Route: 042
  14. MAGNESIUM SULFATE [Suspect]
     Active Substance: MAGNESIUM SULFATE
     Indication: Parenteral nutrition
     Dosage: 20 ML, ONCE DAILY, AGUETTANT
     Route: 042
  15. MAGNESIUM SULFATE [Suspect]
     Active Substance: MAGNESIUM SULFATE
     Dosage: UNK
     Route: 065
  16. POTASSIUM CHLORIDE [Suspect]
     Active Substance: POTASSIUM CHLORIDE
     Indication: Parenteral nutrition
     Dosage: 55 ML, ONCE DAILY
     Route: 042
  17. ZINC GLUCONATE [Suspect]
     Active Substance: ZINC GLUCONATE
     Indication: Parenteral nutrition
     Dosage: 0.01 G, ONCE DAILY
     Route: 042
  18. ZINC GLUCONATE [Suspect]
     Active Substance: ZINC GLUCONATE
     Dosage: BAG ENDING WITH 002KE INJECTABLE ZINC 1 MG/ML, SOLUTION FOR INJECTION FOR INFUSION, 0.005 G
     Route: 042
  19. ZINC GLUCONATE [Suspect]
     Active Substance: ZINC GLUCONATE
     Dosage: BAG ENDING WITH 002E, DOSE RE-INTRODUCED INJECTABLE ZINC 1 MG/ML, SOLUTION FOR INJECTION FOR INFUSIO
     Route: 042
  20. ZINC GLUCONATE [Suspect]
     Active Substance: ZINC GLUCONATE
     Dosage: BAG ENDING WITH 002KE, DOSE RE-INTRODUCED INJECTABLE ZINC 1 MG/ML, SOLUTION FOR INJECTION FOR INFUSI
     Route: 042
  21. ZINC GLUCONATE [Suspect]
     Active Substance: ZINC GLUCONATE
     Dosage: UNK
     Route: 065
  22. ZINC GLUCONATE [Suspect]
     Active Substance: ZINC GLUCONATE
     Dosage: UNK
     Route: 065
  23. SODIUM CHLORIDE [Suspect]
     Active Substance: SODIUM CHLORIDE
     Indication: Parenteral nutrition
     Dosage: STRENGTH: 500 ML, 100 ML, ONCE DIALY
     Route: 042
  24. IRON\MINERALS\POTASSIUM IOD\SODIUM FLUORIDE\SODIUM MOLYBDATE\SODIUM SE [Suspect]
     Active Substance: IRON\MINERALS\POTASSIUM IOD\SODIUM FLUORIDE\SODIUM MOLYBDATE\SODIUM SELENITE\ZINC
     Indication: Parenteral nutrition
     Dosage: 1 IU, ONCE DAILY
     Route: 042

REACTIONS (5)
  - Enterobacter infection [Recovered/Resolved]
  - Suspected transmission of an infectious agent via product [Recovered/Resolved]
  - Exposure during pregnancy [Recovered/Resolved]
  - Pyrexia [Recovered/Resolved]
  - Pyrexia [Recovered/Resolved]

NARRATIVE: CASE EVENT DATE: 20170404
